FAERS Safety Report 17617888 (Version 2)
Quarter: 2020Q2

REPORT INFORMATION
  Report Type: Spontaneous
  Country: US (occurrence: US)
  Receive Date: 20200402
  Receipt Date: 20200407
  Transmission Date: 20200713
  Serious: Yes (Death)
  Sender: FDA-Public Use
  Company Number: US-PFIZER INC-2019448180

PATIENT
  Age: 74 Year
  Sex: Female

DRUGS (3)
  1. VFEND [Suspect]
     Active Substance: VORICONAZOLE
     Dosage: 200MG, 2X/DAY (AS PER REPORTED: (200 MG TOTAL) 2 TIMES DAILY)
  2. VFEND [Suspect]
     Active Substance: VORICONAZOLE
     Dosage: 400 MG, DAILY (TWO TABLETS DAILY)
  3. VFEND [Suspect]
     Active Substance: VORICONAZOLE
     Dosage: 100 MG, DAILY (TWO TABLETS DAILY)

REACTIONS (2)
  - Death [Fatal]
  - Off label use [Unknown]
